FAERS Safety Report 8554362-4 (Version None)
Quarter: 2012Q3

REPORT INFORMATION
  Report Type: 
  Country: None (occurrence: None)
  Receive Date: 20120731
  Receipt Date: 20120718
  Transmission Date: 20120928
  Serious: No
  Sender: FDA-Public Use
  Company Number: US-009507513-1207USA007905

PATIENT

DRUGS (2)
  1. NASONEX [Suspect]
     Dosage: UNK
     Route: 055
  2. FLUTICASONE FUROATE [Suspect]
     Dosage: UNK
     Route: 055

REACTIONS (6)
  - OROPHARYNGEAL PAIN [None]
  - BACK PAIN [None]
  - CHILLS [None]
  - HYPERSENSITIVITY [None]
  - INFLUENZA [None]
  - PHARYNGEAL ERYTHEMA [None]
